FAERS Safety Report 16420629 (Version 8)
Quarter: 2019Q4

REPORT INFORMATION
  Report Type: Report from Study
  Country: None (occurrence: CO)
  Receive Date: 20190612
  Receipt Date: 20191210
  Transmission Date: 20200122
  Serious: Yes (Hospitalization, Disabling, Other)
  Sender: FDA-Public Use
  Company Number: CO-ABBVIE-18K-036-2565715-00

PATIENT
  Age: 54 Year
  Sex: Female
  Weight: 89 kg

DRUGS (14)
  1. FOLIC ACID. [Concomitant]
     Active Substance: FOLIC ACID
     Indication: PRODUCT USED FOR UNKNOWN INDICATION
     Dosage: 4 TABLETS ON SATURDAY?4 TABLETS ON SUNDAY
  2. CALCIUM [Concomitant]
     Active Substance: CALCIUM
     Indication: PRODUCT USED FOR UNKNOWN INDICATION
  3. PREDNISOLONE. [Concomitant]
     Active Substance: PREDNISOLONE
     Dosage: 4 TABLETS ON SATURDAY?4 TABLETS ON SUNDAY
  4. HYDROCODONE/ACETAMINOPHEN [Concomitant]
     Active Substance: ACETAMINOPHEN\HYDROCODONE
     Indication: PRODUCT USED FOR UNKNOWN INDICATION
  5. TRAZODONE [Concomitant]
     Active Substance: TRAZODONE HYDROCHLORIDE
     Indication: PRODUCT USED FOR UNKNOWN INDICATION
  6. HUMIRA [Suspect]
     Active Substance: ADALIMUMAB
     Indication: RHEUMATOID ARTHRITIS
     Route: 058
     Dates: start: 20160929, end: 20190113
  7. LEFLUNOMIDE. [Concomitant]
     Active Substance: LEFLUNOMIDE
     Indication: PRODUCT USED FOR UNKNOWN INDICATION
     Dosage: 4 TABLETS ON SATURDAY?4 TABLETS ON SUNDAY
  8. CIPROFLOXACIN. [Concomitant]
     Active Substance: CIPROFLOXACIN
     Indication: PRODUCT USED FOR UNKNOWN INDICATION
     Dosage: FOR 10 DAYS
  9. SINALGEX [Concomitant]
     Indication: PRODUCT USED FOR UNKNOWN INDICATION
  10. NAPROXEN SODIUM. [Concomitant]
     Active Substance: NAPROXEN SODIUM
     Indication: PRODUCT USED FOR UNKNOWN INDICATION
     Dosage: 2 DAILY TAB FOR 3 DAYS, REST FOR 10 DAYS AND TAKE AGAIN
  11. METHOTREXATE. [Concomitant]
     Active Substance: METHOTREXATE
     Indication: PRODUCT USED FOR UNKNOWN INDICATION
     Dosage: 4 TABLETS ON SATURDAY?4 TABLETS ON SUNDAY
  12. PREDNISOLONE. [Concomitant]
     Active Substance: PREDNISOLONE
     Indication: PRODUCT USED FOR UNKNOWN INDICATION
     Dosage: 4 TABLETS ON SATURDAY?4 TABLETS ON SUNDAY
  13. IMIPRAMINE [Concomitant]
     Active Substance: IMIPRAMINE
     Indication: PRODUCT USED FOR UNKNOWN INDICATION
  14. BETADUO [Suspect]
     Active Substance: BETAMETHASONE DIPROPIONATE\BETAMETHASONE SODIUM PHOSPHATE
     Indication: PRODUCT USED FOR UNKNOWN INDICATION
     Route: 065

REACTIONS (24)
  - Arthritis [Recovering/Resolving]
  - Arthritis [Recovering/Resolving]
  - Rheumatoid arthritis [Recovering/Resolving]
  - Chest pain [Recovering/Resolving]
  - Synovitis [Unknown]
  - Synovial sarcoma [Not Recovered/Not Resolved]
  - Gastritis [Recovering/Resolving]
  - Asphyxia [Recovering/Resolving]
  - Swelling [Recovering/Resolving]
  - Gastrooesophageal reflux disease [Recovering/Resolving]
  - Gait disturbance [Recovering/Resolving]
  - Muscle spasms [Unknown]
  - Carpal tunnel syndrome [Unknown]
  - Arthroscopy [Recovering/Resolving]
  - Diarrhoea [Recovering/Resolving]
  - Rheumatoid arthritis [Not Recovered/Not Resolved]
  - Inflammation [Recovering/Resolving]
  - Arthralgia [Recovering/Resolving]
  - Weight increased [Recovering/Resolving]
  - Tremor [Unknown]
  - Pain in extremity [Unknown]
  - Joint effusion [Unknown]
  - Disability [Not Recovered/Not Resolved]
  - Drug ineffective [Unknown]

NARRATIVE: CASE EVENT DATE: 201802
